FAERS Safety Report 6341552-4 (Version None)
Quarter: 2009Q3

REPORT INFORMATION
  Report Type: 
  Country: None (occurrence: None)
  Receive Date: 20090904
  Receipt Date: 20090827
  Transmission Date: 20100115
  Serious: Yes (Other)
  Sender: FDA-Public Use
  Company Number: HK-GENENTECH-289256

PATIENT
  Sex: Female

DRUGS (2)
  1. TRASTUZUMAB [Suspect]
     Indication: BREAST CANCER
     Dosage: 4 MG/KG, 1/WEEK
     Route: 042
     Dates: start: 20090428, end: 20090818
  2. PACLITAXEL [Suspect]
     Indication: BREAST CANCER
     Dosage: 80 MG/M2, 1/WEEK
     Route: 042
     Dates: start: 20090609, end: 20090825

REACTIONS (1)
  - ALANINE AMINOTRANSFERASE INCREASED [None]
